FAERS Safety Report 19271028 (Version 1)
Quarter: 2021Q2

REPORT INFORMATION
  Report Type: Report from Study
  Country: AU (occurrence: AU)
  Receive Date: 20210518
  Receipt Date: 20210518
  Transmission Date: 20210717
  Serious: Yes (Hospitalization)
  Sender: FDA-Public Use
  Company Number: AU-PFIZER INC-2021542972

PATIENT
  Age: 9 Year
  Sex: Male
  Weight: 50 kg

DRUGS (32)
  1. PARACETAMOL [Concomitant]
     Active Substance: ACETAMINOPHEN
     Indication: PAIN IN JAW
     Dosage: UNIT DOSE: 750?790 MG (AS REQUIRED)
     Route: 048
     Dates: start: 20210210
  2. OSMOLAX [MACROGOL] [Concomitant]
     Active Substance: POLYETHYLENE GLYCOL, UNSPECIFIED
     Indication: CONSTIPATION
     Dosage: 17 GM (17 GM, 1 IN 1 D)
     Route: 048
     Dates: start: 20210221
  3. VENETOCLAX. [Suspect]
     Active Substance: VENETOCLAX
     Indication: NEOPLASM MALIGNANT
     Dosage: 200 MG, TABLET FOR ORAL SUSPENSION, OPEN?LABEL
     Route: 048
     Dates: start: 20210302, end: 20210302
  4. MERCAPTOPURINE. [Suspect]
     Active Substance: MERCAPTOPURINE
     Dosage: 60 MG/M2, OPEN LABEL
     Route: 048
     Dates: start: 20210406, end: 20210419
  5. OXYCODONE [Concomitant]
     Active Substance: OXYCODONE
     Indication: PAIN IN JAW
     Dosage: 5.3 MG, AS NEEDED
     Route: 048
     Dates: start: 20210210
  6. FISH OIL [Concomitant]
     Active Substance: FISH OIL
     Indication: BLOOD TRIGLYCERIDES INCREASED
     Dosage: 2700 MG (2700 MG,1 IN 1 D), OMEGA 3 900 MG
     Route: 048
     Dates: start: 20210319
  7. METHOTREXATE. [Suspect]
     Active Substance: METHOTREXATE
     Indication: NEOPLASM MALIGNANT
     Dosage: DAY 33 CHEMO AS PER PROTOCOL
     Route: 037
     Dates: start: 20210309, end: 20210309
  8. OXYCODONE [Concomitant]
     Active Substance: OXYCODONE
     Indication: BACK PAIN
  9. FILGRASTIM [Concomitant]
     Active Substance: FILGRASTIM
     Indication: NEUTROPENIA
     Dosage: 250 MCG (250 MCG, 1 IN 1 D)
     Route: 042
     Dates: start: 20210322
  10. MEROPENEM. [Concomitant]
     Active Substance: MEROPENEM
     Indication: PROPHYLAXIS
     Dosage: 6 GM (2 GM, 3 IN 1 D)
     Route: 042
     Dates: start: 20210323
  11. CYTARABINE. [Suspect]
     Active Substance: CYTARABINE
     Indication: CHEMOTHERAPY
     Dosage: 75 MG/M2 (75 MG/M2, 1 IN 1 D), OPEN LABEL
     Route: 058
     Dates: start: 20210406, end: 20210409
  12. VENETOCLAX. [Suspect]
     Active Substance: VENETOCLAX
     Dosage: 400 MG, TABLET FOR ORAL SUSPENSION, OPEN?LABEL
     Route: 048
     Dates: start: 20210303, end: 20210408
  13. PREDNISONE. [Suspect]
     Active Substance: PREDNISONE
     Dosage: (7.5 MG, 3 IN 1 D), OPEN LABEL
     Route: 048
     Dates: start: 20210309, end: 20210312
  14. PREDNISONE. [Suspect]
     Active Substance: PREDNISONE
     Dosage: (3.75 MG, 3 IN 1 D), OPEN LABEL
     Route: 048
     Dates: start: 20210313, end: 20210315
  15. MERCAPTOPURINE. [Suspect]
     Active Substance: MERCAPTOPURINE
     Indication: NEOPLASM MALIGNANT
     Dosage: 60 MG/M2, OPEN LABEL
     Route: 048
     Dates: start: 20210317, end: 20210321
  16. PARACETAMOL [Concomitant]
     Active Substance: ACETAMINOPHEN
     Indication: PYREXIA
  17. SODIUM BICARBONATE. [Concomitant]
     Active Substance: SODIUM BICARBONATE
     Indication: PROPHYLAXIS
     Dosage: 40 ML (10 ML, 4 IN 1 D), SODIUM BICARBONATE MOUTHWASH
     Route: 061
     Dates: start: 20210302
  18. FILGRASTIM [Concomitant]
     Active Substance: FILGRASTIM
     Indication: WHITE BLOOD CELL COUNT DECREASED
  19. VENETOCLAX. [Suspect]
     Active Substance: VENETOCLAX
     Dosage: 400 MG, ROUTE: NASOGASTRIC, TABLET FOR ORAL SUSPENSION, OPEN?LABEL
     Dates: start: 20210409, end: 20210418
  20. CYCLOPHOSPHAMIDE. [Suspect]
     Active Substance: CYCLOPHOSPHAMIDE
     Indication: NEOPLASM MALIGNANT
     Dosage: 1000 MG/M2, OPEN LABEL
     Route: 042
     Dates: start: 20210413, end: 20210413
  21. PREDNISONE. [Suspect]
     Active Substance: PREDNISONE
     Indication: NEOPLASM MALIGNANT
     Dosage: (15 MG, 3 IN 1 D), OPEN LABEL
     Route: 048
     Dates: start: 20210306, end: 20210309
  22. ONDANSETRON [Concomitant]
     Active Substance: ONDANSETRON
     Indication: PROPHYLAXIS OF NAUSEA AND VOMITING
     Dosage: 7 MG, AS NEEDED
     Route: 042
     Dates: start: 20210205
  23. CYTARABINE. [Suspect]
     Active Substance: CYTARABINE
     Indication: NEOPLASM MALIGNANT
     Dosage: 75 MG/M2 (75 MG/M2, 1 IN 1 D), OPEN LABEL
     Route: 058
     Dates: start: 20210317, end: 20210320
  24. VENETOCLAX. [Suspect]
     Active Substance: VENETOCLAX
     Dosage: 400 MG, ROUTE: NASOGASTRIC, TABLET FOR ORAL SUSPENSION, OPEN?LABEL
     Dates: start: 20210504
  25. PEG/L?ASPARAGINASE [Suspect]
     Active Substance: PEGASPARGASE
     Indication: NEOPLASM MALIGNANT
     Dosage: 2500 IU/M2, OPEN LABEL
     Route: 042
     Dates: start: 20210302, end: 20210302
  26. NYSTATIN. [Concomitant]
     Active Substance: NYSTATIN
     Indication: PROPHYLAXIS
     Dosage: 4 ML (1 ML, 4 IN 1 D)
     Route: 048
     Dates: start: 20210302
  27. BACTRIM [Concomitant]
     Active Substance: SULFAMETHOXAZOLE\TRIMETHOPRIM
     Indication: PROPHYLAXIS
     Dosage: UNIT DOSE: 800/160 MG, FREQUENCY: BD ON MON, WED, FRI
     Route: 048
     Dates: start: 20210312
  28. VINCRISTINE SULFATE. [Suspect]
     Active Substance: VINCRISTINE SULFATE
     Indication: NEOPLASM MALIGNANT
     Dosage: 2 MG, INJECTION, OPEN LABEL
     Route: 042
     Dates: start: 20210305, end: 20210305
  29. ONDANSETRON [Concomitant]
     Active Substance: ONDANSETRON
     Indication: VOMITING
     Dosage: PRN (6 MG, 3 IN 1 D)
     Route: 048
     Dates: start: 20210312
  30. PARACETAMOL [Concomitant]
     Active Substance: ACETAMINOPHEN
     Indication: PAIN IN EXTREMITY
  31. PARACETAMOL [Concomitant]
     Active Substance: ACETAMINOPHEN
     Indication: BACK PAIN
  32. OXYCODONE [Concomitant]
     Active Substance: OXYCODONE
     Indication: PAIN IN EXTREMITY

REACTIONS (1)
  - Febrile neutropenia [Recovered/Resolved]

NARRATIVE: CASE EVENT DATE: 20210423
